FAERS Safety Report 13976779 (Version 2)
Quarter: 2017Q3

REPORT INFORMATION
  Report Type: Spontaneous
  Country: AT (occurrence: AT)
  Receive Date: 20170915
  Receipt Date: 20170915
  Transmission Date: 20171128
  Serious: Yes (Other)
  Sender: FDA-Public Use
  Company Number: AT-CIPLA LTD.-STD201406-002264

PATIENT

DRUGS (13)
  1. MELOXICAM. [Interacting]
     Active Substance: MELOXICAM
     Dosage: UNK
     Route: 065
  2. PANTOPRAZOLE [Interacting]
     Active Substance: PANTOPRAZOLE
     Dosage: UNK
     Route: 065
  3. INDAPAMIDE. [Interacting]
     Active Substance: INDAPAMIDE
     Dosage: UNK
     Route: 065
  4. SIMVASTATIN. [Interacting]
     Active Substance: SIMVASTATIN
     Dosage: UNK
     Route: 065
  5. RIVASTIGMINE. [Interacting]
     Active Substance: RIVASTIGMINE
     Dosage: UNK
     Route: 065
  6. DABIGATRAN [Interacting]
     Active Substance: DABIGATRAN
     Dosage: 150 MG, BID
     Route: 065
  7. RAMIPRIL. [Suspect]
     Active Substance: RAMIPRIL
     Dosage: UNK
     Route: 065
  8. RISPERIDONE. [Interacting]
     Active Substance: RISPERIDONE
     Dosage: UNK
     Route: 065
  9. NEBIVOLOL. [Interacting]
     Active Substance: NEBIVOLOL
     Dosage: UNK
     Route: 065
  10. LEVOTHYROXINE. [Interacting]
     Active Substance: LEVOTHYROXINE
     Dosage: UNK
     Route: 065
  11. SERTRALINE [Interacting]
     Active Substance: SERTRALINE HYDROCHLORIDE
     Dosage: UNK
     Route: 065
  12. DIGOXIN. [Interacting]
     Active Substance: DIGOXIN
     Dosage: UNK
     Route: 065
  13. FUROSEMIDE. [Interacting]
     Active Substance: FUROSEMIDE
     Dosage: UNK
     Route: 065

REACTIONS (4)
  - Renal impairment [Unknown]
  - Gastrointestinal haemorrhage [Recovered/Resolved]
  - Chronic gastritis [Recovered/Resolved]
  - Drug interaction [Unknown]
